FAERS Safety Report 7099574-4 (Version None)
Quarter: 2010Q4

REPORT INFORMATION
  Report Type: 
  Country: None (occurrence: None)
  Receive Date: 20101112
  Receipt Date: 20101101
  Transmission Date: 20110411
  Serious: Yes (Disabling)
  Sender: FDA-Public Use
  Company Number: DE-SANOFI-AVENTIS-2010SA066266

PATIENT
  Age: 59 Year
  Sex: Female

DRUGS (4)
  1. TAXOTERE [Suspect]
     Indication: BREAST CANCER
     Route: 041
     Dates: start: 20101007, end: 20101007
  2. DOCITON [Concomitant]
  3. RAMIPRIL [Concomitant]
  4. HYDROCHLOROTHIAZIDE [Concomitant]

REACTIONS (6)
  - BLOOD CREATININE INCREASED [None]
  - GENERAL PHYSICAL HEALTH DETERIORATION [None]
  - GENERALISED OEDEMA [None]
  - NAUSEA [None]
  - STOMATITIS [None]
  - TUBULOINTERSTITIAL NEPHRITIS [None]
